FAERS Safety Report 10023164 (Version 3)
Quarter: 2014Q1

REPORT INFORMATION
  Report Type: Spontaneous
  Country: IT (occurrence: IT)
  Receive Date: 20140320
  Receipt Date: 20140331
  Transmission Date: 20141002
  Serious: Yes (Death, Hospitalization, Other)
  Sender: FDA-Public Use
  Company Number: IT-AMGEN-ITASP2013079119

PATIENT
  Sex: Female

DRUGS (2)
  1. PROLIA [Suspect]
     Indication: OSTEOPOROSIS
     Dosage: UNK
     Route: 065
  2. CALCIUM + VITAMIN D                /01483701/ [Concomitant]
     Indication: SUPPLEMENTATION THERAPY

REACTIONS (9)
  - Plasma cell myeloma [Unknown]
  - Cardiac arrest [Fatal]
  - Diverticular perforation [Unknown]
  - Transient ischaemic attack [Unknown]
  - Confusional state [Unknown]
  - Agitation [Unknown]
  - Nervous system disorder [Unknown]
  - Spinal operation [Unknown]
  - Immunoglobulins increased [Unknown]
